FAERS Safety Report 4603301-7 (Version None)
Quarter: 2005Q1

REPORT INFORMATION
  Report Type: 
  Country: None (occurrence: None)
  Receive Date: 20050307
  Receipt Date: 20050224
  Transmission Date: 20050727
  Serious: Yes (Death, Hospitalization)
  Sender: FDA-Public Use
  Company Number: 200510437GDS

PATIENT
  Age: 91 Year
  Sex: Male

DRUGS (3)
  1. ASPIRIN [Suspect]
     Dosage: 100 MG, QD, ORAL
     Route: 048
     Dates: start: 20040601, end: 20041201
  2. GELOCATIL [Concomitant]
  3. OMEPRAZOLE [Concomitant]

REACTIONS (2)
  - CEREBRAL HAEMORRHAGE [None]
  - SUBDURAL HAEMORRHAGE [None]
